FAERS Safety Report 6361723-0 (Version None)
Quarter: 2009Q3

REPORT INFORMATION
  Report Type: 
  Country: None (occurrence: None)
  Receive Date: 20090918
  Receipt Date: 20090907
  Transmission Date: 20100115
  Serious: Yes (Other)
  Sender: FDA-Public Use
  Company Number: CN-PFIZER INC-2009264768

PATIENT
  Age: 61 Year

DRUGS (1)
  1. VIAGRA [Suspect]
     Dosage: 25 MG, UNK
     Route: 048
     Dates: start: 20090906

REACTIONS (3)
  - BLOOD PRESSURE INCREASED [None]
  - HEART RATE INCREASED [None]
  - VENTRICULAR EXTRASYSTOLES [None]
